FAERS Safety Report 22663985 (Version 5)
Quarter: 2023Q4

REPORT INFORMATION
  Report Type: Spontaneous
  Country: PT (occurrence: PT)
  Receive Date: 20230703
  Receipt Date: 20231007
  Transmission Date: 20240110
  Serious: Yes (Hospitalization, Other)
  Sender: FDA-Public Use
  Company Number: PT-AUROBINDO-AUR-APL-2023-041419

PATIENT
  Age: 47 Year
  Sex: Female

DRUGS (2)
  1. METFORMIN [Suspect]
     Active Substance: METFORMIN HYDROCHLORIDE
     Indication: Diabetes mellitus
     Dosage: 2 GRAM, ONCE A DAY
     Route: 065
  2. INSULIN GLARGINE [Concomitant]
     Active Substance: INSULIN GLARGINE
     Indication: Diabetes mellitus
     Dosage: UNK
     Route: 065

REACTIONS (10)
  - Lactic acidosis [Recovered/Resolved]
  - Hyperlactacidaemia [Recovered/Resolved]
  - Blood urea increased [Recovering/Resolving]
  - Blood creatinine increased [Recovering/Resolving]
  - Asthenia [Recovered/Resolved]
  - Dehydration [Recovered/Resolved]
  - Hypotension [Recovered/Resolved]
  - Nausea [Recovered/Resolved]
  - Vomiting [Recovered/Resolved]
  - Metabolic acidosis [Recovered/Resolved]
